FAERS Safety Report 7859054-2 (Version None)
Quarter: 2011Q4

REPORT INFORMATION
  Report Type: 
  Country: None (occurrence: None)
  Receive Date: 20111027
  Receipt Date: 20111012
  Transmission Date: 20120403
  Serious: Yes (Hospitalization)
  Sender: FDA-Public Use
  Company Number: US-BAYER-2011-020330

PATIENT
  Age: 30 Year
  Sex: Female
  Weight: 68.027 kg

DRUGS (5)
  1. VICODIN [Concomitant]
  2. YAZ [Suspect]
     Indication: PREMENSTRUAL SYNDROME
     Dosage: UNK
     Route: 048
     Dates: start: 20070401, end: 20080421
  3. WARFARIN SODIUM [Concomitant]
  4. MOTRIN [Concomitant]
  5. LOVENOX [Concomitant]

REACTIONS (5)
  - PAIN [None]
  - MENTAL DISORDER [None]
  - PULMONARY EMBOLISM [None]
  - INJURY [None]
  - DEEP VEIN THROMBOSIS [None]
